FAERS Safety Report 25627489 (Version 2)
Quarter: 2025Q3

REPORT INFORMATION
  Report Type: Spontaneous
  Country: CN (occurrence: CN)
  Receive Date: 20250731
  Receipt Date: 20250926
  Transmission Date: 20251021
  Serious: Yes (Life-Threatening)
  Sender: BAYER HEALTHCARE PHARMACEUTICALS INC.
  Company Number: CN-BAYER-2025A101913

PATIENT
  Age: 70 Year
  Sex: Female
  Weight: 52.5 kg

DRUGS (2)
  1. ULTRAVIST [Suspect]
     Active Substance: IOPROMIDE
     Indication: Computerised tomogram heart
     Route: 042
     Dates: start: 20250721, end: 20250721
  2. ULTRAVIST [Suspect]
     Active Substance: IOPROMIDE
     Indication: Arrhythmia

REACTIONS (5)
  - Erythema [Recovering/Resolving]
  - Conjunctival hyperaemia [Recovering/Resolving]
  - Laryngeal oedema [Recovering/Resolving]
  - Dyspnoea [Recovering/Resolving]
  - Blood pressure systolic increased [None]

NARRATIVE: CASE EVENT DATE: 20250721
